FAERS Safety Report 4778485-0 (Version None)
Quarter: 2005Q3

REPORT INFORMATION
  Report Type: 
  Country: None (occurrence: None)
  Receive Date: 20050926
  Receipt Date: 20050914
  Transmission Date: 20060218
  Serious: Yes (Other)
  Sender: FDA-Public Use
  Company Number: 2005AP04931

PATIENT
  Age: 41 Year
  Sex: Female

DRUGS (2)
  1. IRESSA [Suspect]
     Indication: NON-SMALL CELL LUNG CANCER
     Route: 048
     Dates: start: 20030201
  2. RADIOTHERAPY [Suspect]
     Indication: METASTASES TO CENTRAL NERVOUS SYSTEM
     Dosage: X-KNIFE 15 GY TO MARGINAL AREA
     Dates: start: 20030801

REACTIONS (4)
  - BRAIN OEDEMA [None]
  - NECROSIS [None]
  - RADIATION INJURY [None]
  - VASCULAR OCCLUSION [None]
